FAERS Safety Report 26132161 (Version 2)
Quarter: 2025Q4

REPORT INFORMATION
  Report Type: Report from Study
  Country: CO (occurrence: None)
  Receive Date: 20251208
  Receipt Date: 20251211
  Transmission Date: 20260118
  Serious: Yes (Death, Hospitalization, Other)
  Sender: UCB
  Company Number: CO-UCBSA-2025077549

PATIENT
  Age: 67 Year

DRUGS (6)
  1. ROTIGOTINE [Suspect]
     Active Substance: ROTIGOTINE
     Indication: Parkinson^s disease
     Dosage: 4MG X 1 PER 24 HOURS
  2. ROTIGOTINE [Suspect]
     Active Substance: ROTIGOTINE
     Dosage: 8 MG X 1 PER 24 HOURS
  3. ROTIGOTINE [Suspect]
     Active Substance: ROTIGOTINE
     Dosage: 6MG X 1 PER 24 HOURS
  4. ROTIGOTINE [Suspect]
     Active Substance: ROTIGOTINE
     Dosage: 12MG X 1 PER 24 HOURS
  5. ROTIGOTINE [Suspect]
     Active Substance: ROTIGOTINE
     Dosage: 16 MG X 1 PER 24 HOURS
  6. ROTIGOTINE [Suspect]
     Active Substance: ROTIGOTINE
     Dosage: 8 MG X 1 PER 24 HOURS

REACTIONS (4)
  - Death [Fatal]
  - Lung neoplasm malignant [Unknown]
  - Pneumonia [Unknown]
  - Ulcer [Unknown]
